FAERS Safety Report 9133334 (Version 1)
Quarter: 2013Q1

REPORT INFORMATION
  Report Type: Spontaneous
  Country: GB (occurrence: GB)
  Receive Date: 20130301
  Receipt Date: 20130301
  Transmission Date: 20140127
  Serious: Yes (Life-Threatening, Hospitalization, Disabling, Other)
  Sender: FDA-Public Use
  Company Number: GB-PFIZER INC-2013069278

PATIENT
  Age: 57 Year
  Sex: Female
  Weight: 76 kg

DRUGS (12)
  1. FLUCONAZOLE [Suspect]
     Dates: start: 20130117
  2. AMLODIPINE [Concomitant]
     Dates: start: 20121015
  3. OMEPRAZOLE [Concomitant]
     Dates: start: 20121024
  4. PREDNISOLONE SODIUM PHOSPHATE [Concomitant]
     Dates: start: 20121024
  5. NAPROXEN [Concomitant]
     Dates: start: 20121024
  6. MICONAZOLE [Concomitant]
     Dates: start: 20121024, end: 20121121
  7. MICONAZOLE [Concomitant]
     Dates: start: 20121217, end: 20130114
  8. CO-DYDRAMOL [Concomitant]
     Dates: start: 20121102, end: 20130129
  9. ATENOLOL [Concomitant]
     Dates: start: 20121102
  10. MEBEVERINE HYDROCHLORIDE [Concomitant]
     Dates: start: 20121121
  11. FLUCLOXACILLIN [Concomitant]
     Dates: start: 20121126, end: 20121203
  12. AMOXICILLIN\CLAVULANATE POTASSIUM [Concomitant]
     Dates: start: 20121228, end: 20130104

REACTIONS (2)
  - Encephalitic infection [Recovering/Resolving]
  - Meningitis [Unknown]
